FAERS Safety Report 23262040 (Version 1)
Quarter: 2023Q4

REPORT INFORMATION
  Report Type: Report from Study
  Country: US (occurrence: US)
  Receive Date: 20231205
  Receipt Date: 20231205
  Transmission Date: 20240109
  Serious: Yes (Other)
  Sender: FDA-Public Use
  Company Number: US-ABBVIE-5437456

PATIENT
  Sex: Female

DRUGS (9)
  1. HUMIRA [Suspect]
     Active Substance: ADALIMUMAB
     Indication: Crohn^s disease
     Dosage: CITRATE FREE?FORM STRENGTH 40 MILLIGRAMS
     Route: 058
     Dates: start: 20210805
  2. HUMIRA [Suspect]
     Active Substance: ADALIMUMAB
     Dosage: CITRATE FREE?FORM STRENGTH 40 MILLIGRAMS
     Route: 058
     Dates: end: 20230928
  3. VITAMIN A [Concomitant]
     Active Substance: VITAMIN A
     Indication: Product used for unknown indication
     Dosage: TAKE 1 TABLET BY MOUTH DAILY WITH BREAKFAST
     Route: 048
  4. DELTASONE [Concomitant]
     Active Substance: PREDNISONE
     Indication: Product used for unknown indication
     Dosage: TAKE 40 MG (8 TABLETS) DAILY FOR 7 DAYS, THEN TAPER DOWN BY 5 MG WEEKLY UNTIL FINISHED. 8 WEEK CO...
     Route: 048
     Dates: start: 20230725, end: 20230907
  5. ASPIRIN [Concomitant]
     Active Substance: ASPIRIN
     Indication: Product used for unknown indication
     Route: 048
  6. TYLENOL PM [Concomitant]
     Active Substance: ACETAMINOPHEN\DIPHENHYDRAMINE
     Indication: Sleep disorder therapy
     Dosage: TAKE 1 TABLET BY MOUTH NIGHTLY AS NEEDED
     Route: 048
  7. TYLENOL [Concomitant]
     Active Substance: ACETAMINOPHEN
     Indication: Pain
     Dosage: TAKE 1 TABLET BY MOUTH EVERY 4 (FOUR) HOURS AS NEEDED
     Route: 048
     Dates: start: 20210408
  8. TYLENOL PM [Concomitant]
     Active Substance: ACETAMINOPHEN\DIPHENHYDRAMINE
     Indication: Sleep disorder therapy
     Dosage: 25-500MG?TAKE 1 TABLET BY MOUTH NIGHTLY AS NEEDED
     Route: 048
  9. NORCO [Concomitant]
     Active Substance: ACETAMINOPHEN\HYDROCODONE BITARTRATE
     Indication: Pain
     Dosage: TIME INTERVAL: 0.33333333 DAYS: 10-325MG?TAKE 1 TABLET BY MOUTH 3 (THREE) TIMES A DAY AS NEEDED F...
     Route: 048

REACTIONS (13)
  - Large intestinal obstruction [Unknown]
  - Large intestinal stenosis [Unknown]
  - Drug ineffective [Unknown]
  - Colitis ulcerative [Unknown]
  - Drug specific antibody present [Unknown]
  - Malaise [Unknown]
  - Intestinal obstruction [Unknown]
  - Gastrointestinal inflammation [Unknown]
  - Haemorrhoids [Unknown]
  - Crohn^s disease [Unknown]
  - Inflammatory bowel disease [Unknown]
  - Colitis [Unknown]
  - Intestinal ulcer [Unknown]
